FAERS Safety Report 10780196 (Version 1)
Quarter: 2015Q1

REPORT INFORMATION
  Report Type: Spontaneous
  Country: US (occurrence: None)
  Receive Date: 20150209
  Receipt Date: 20150209
  Transmission Date: 20150721
  Serious: Yes (Life-Threatening, Hospitalization, Disabling)
  Sender: FDA-Public Use
  Company Number: None

PATIENT
  Age: 61 Year
  Sex: Female
  Weight: 61.24 kg

DRUGS (9)
  1. CALCIUM/VITAMIN D [Concomitant]
     Active Substance: CALCIUM\VITAMIN D
  2. PRILOSEC [Concomitant]
     Active Substance: OMEPRAZOLE MAGNESIUM
  3. PREDNISONE. [Concomitant]
     Active Substance: PREDNISONE
  4. MULTIVITAMINS [Concomitant]
     Active Substance: VITAMINS
  5. URSODIOL. [Concomitant]
     Active Substance: URSODIOL
  6. LORAZEPAM. [Concomitant]
     Active Substance: LORAZEPAM
  7. SIMVASTATIN. [Concomitant]
     Active Substance: SIMVASTATIN
  8. RITUXIMAB [Suspect]
     Active Substance: RITUXIMAB
     Indication: CHRONIC GRAFT VERSUS HOST DISEASE
     Dosage: 375 MG/M2 QWEEK X 4 INTRAVENOUS
     Dates: start: 20140601, end: 20140630
  9. FAMCICLOVIR. [Concomitant]
     Active Substance: FAMCICLOVIR

REACTIONS (1)
  - Progressive multifocal leukoencephalopathy [None]

NARRATIVE: CASE EVENT DATE: 20141103
